FAERS Safety Report 10049131 (Version 2)
Quarter: 2014Q2

REPORT INFORMATION
  Report Type: Spontaneous
  Country: US (occurrence: US)
  Receive Date: 20140401
  Receipt Date: 20140416
  Transmission Date: 20141212
  Serious: Yes (Other)
  Sender: FDA-Public Use
  Company Number: US-ROCHE-1374200

PATIENT
  Age: 63 Year
  Sex: Female

DRUGS (4)
  1. PERJETA [Suspect]
     Indication: BREAST CANCER METASTATIC
     Route: 065
     Dates: start: 201312
  2. PERJETA [Suspect]
     Route: 042
     Dates: start: 20130109, end: 20140313
  3. HERCEPTIN [Suspect]
     Indication: BREAST CANCER METASTATIC
     Route: 042
     Dates: start: 200904, end: 20140312
  4. BENICAR [Concomitant]
     Route: 048

REACTIONS (8)
  - Ventricular hypokinesia [Unknown]
  - Ejection fraction decreased [Recovered/Resolved]
  - Disease progression [Unknown]
  - Chest discomfort [Not Recovered/Not Resolved]
  - Dyspnoea [Not Recovered/Not Resolved]
  - Ejection fraction decreased [Not Recovered/Not Resolved]
  - Ventricular hypokinesia [Unknown]
  - Hypokinesia [Unknown]
